FAERS Safety Report 9725500 (Version 3)
Quarter: 2014Q1

REPORT INFORMATION
  Report Type: Spontaneous
  Country: JP (occurrence: JP)
  Receive Date: 20131203
  Receipt Date: 20140127
  Transmission Date: 20141002
  Serious: Yes (Death, Other)
  Sender: FDA-Public Use
  Company Number: PHHY2013JP138632

PATIENT
  Age: 52 Year
  Sex: 0

DRUGS (3)
  1. FEMARA [Suspect]
     Indication: BREAST CANCER
     Route: 048
  2. ZOMETA [Suspect]
     Indication: METASTASES TO BREAST
     Route: 041
  3. FASLODEX [Concomitant]

REACTIONS (8)
  - Metastases to lung [Fatal]
  - Femur fracture [Recovered/Resolved]
  - Bone pain [Unknown]
  - Metastases to bone [Unknown]
  - Anorectal disorder [Recovering/Resolving]
  - Bladder disorder [Recovering/Resolving]
  - Pain in extremity [Recovering/Resolving]
  - Gait disturbance [Unknown]
